FAERS Safety Report 8697423 (Version 5)
Quarter: 2012Q4

REPORT INFORMATION
  Report Type: 
  Country: US (occurrence: US)
  Receive Date: 20120801
  Receipt Date: 20121109
  Transmission Date: 20130627
  Serious: Yes (Other)
  Sender: FDA-Public Use
  Company Number: US-PFIZER INC-2012185693

PATIENT
  Age: 63 Year
  Sex: Female
  Weight: 59 kg

DRUGS (4)
  1. PRISTIQ [Suspect]
     Indication: DEPRESSION
     Dosage: 50 mg, 1x/day
     Route: 048
     Dates: start: 2009
  2. PRISTIQ [Suspect]
     Dosage: 100 mg, 1x/day
     Route: 048
  3. XANAX [Concomitant]
     Dosage: 0.5 mg, as needed
  4. FIORINAL [Concomitant]
     Indication: MIGRAINE
     Dosage: UNK

REACTIONS (13)
  - Suicidal ideation [Recovered/Resolved]
  - Depression [Recovered/Resolved]
  - Mood swings [Recovered/Resolved]
  - Activities of daily living impaired [Recovered/Resolved]
  - Drug ineffective [Unknown]
  - Drug dose omission [Unknown]
  - Crying [Recovered/Resolved]
  - Headache [Recovered/Resolved]
  - Pain [Recovered/Resolved]
  - Lethargy [Recovered/Resolved]
  - Anxiety [Recovered/Resolved]
  - Insomnia [Recovered/Resolved]
  - Eating disorder [Recovered/Resolved]
